FAERS Safety Report 7380022-1 (Version None)
Quarter: 2011Q1

REPORT INFORMATION
  Report Type: 
  Country: None (occurrence: None)
  Receive Date: 20110329
  Receipt Date: 20110321
  Transmission Date: 20110831
  Serious: Yes (Death, Other)
  Sender: FDA-Public Use
  Company Number: IT-JNJFOC-20110309890

PATIENT

DRUGS (23)
  1. PREDNISONE [Suspect]
     Indication: PREMEDICATION
     Route: 048
  2. VINCRISTINE [Suspect]
     Route: 042
  3. CYCLOPHOSPHAMIDE [Suspect]
     Route: 065
  4. DOXORUBICIN HCL [Suspect]
     Indication: LYMPHOCYTIC LEUKAEMIA
     Route: 042
  5. CYTARABINE [Suspect]
     Route: 037
  6. METHOTREXATE [Suspect]
     Indication: LYMPHOCYTIC LEUKAEMIA
     Route: 037
  7. METHOTREXATE [Suspect]
     Route: 037
  8. IFOSFAMIDE [Suspect]
     Indication: LYMPHOCYTIC LEUKAEMIA
     Route: 065
  9. CYCLOPHOSPHAMIDE [Suspect]
     Indication: LYMPHOCYTIC LEUKAEMIA
     Route: 065
  10. CYCLOPHOSPHAMIDE [Suspect]
     Route: 065
  11. LEUCOVORIN CALCIUM [Concomitant]
     Route: 042
  12. VINCRISTINE [Suspect]
     Indication: LYMPHOCYTIC LEUKAEMIA
     Route: 042
  13. CYTARABINE [Suspect]
     Indication: LYMPHOCYTIC LEUKAEMIA
     Route: 037
  14. METHOTREXATE [Suspect]
     Route: 037
  15. CYTARABINE [Suspect]
     Route: 037
  16. DEXAMETHASONE [Suspect]
     Route: 048
  17. PREDNISOLONE [Suspect]
     Route: 037
  18. CYCLOPHOSPHAMIDE [Suspect]
     Indication: PREMEDICATION
     Route: 065
  19. PREDNISONE [Suspect]
     Indication: LYMPHOCYTIC LEUKAEMIA
     Route: 048
  20. TENIPOSIDE [Suspect]
     Indication: LYMPHOCYTIC LEUKAEMIA
     Route: 065
  21. PREDNISOLONE [Suspect]
     Indication: LYMPHOCYTIC LEUKAEMIA
     Route: 037
  22. PREDNISOLONE [Suspect]
     Route: 037
  23. DEXAMETHASONE [Suspect]
     Indication: LYMPHOCYTIC LEUKAEMIA
     Route: 048

REACTIONS (1)
  - PNEUMONIA CYTOMEGALOVIRAL [None]
